FAERS Safety Report 10470734 (Version 4)
Quarter: 2015Q3

REPORT INFORMATION
  Report Type: Spontaneous
  Country: US (occurrence: US)
  Receive Date: 20140923
  Receipt Date: 20150702
  Transmission Date: 20151125
  Serious: Yes (Hospitalization, Other)
  Sender: FDA-Public Use
  Company Number: US-GLAXOSMITHKLINE-A1089139A

PATIENT
  Age: 60 Year
  Sex: Female

DRUGS (2)
  1. ADVAIR HFA [Suspect]
     Active Substance: FLUTICASONE PROPIONATE\SALMETEROL XINAFOATE
     Indication: ASTHMA
     Dosage: UNK
  2. ADVAIR HFA [Suspect]
     Active Substance: FLUTICASONE PROPIONATE\SALMETEROL XINAFOATE
     Indication: DYSPNOEA
     Dosage: 2 PUFF(S), BID
     Route: 055
     Dates: start: 2004

REACTIONS (21)
  - Vomiting [Unknown]
  - Abdominal pain upper [Unknown]
  - Gastrointestinal surgery [Unknown]
  - Oesophagogastroduodenoscopy [Unknown]
  - Emergency care examination [Unknown]
  - Back pain [Unknown]
  - Hospitalisation [Unknown]
  - Oesophageal pH [Unknown]
  - Diarrhoea [Unknown]
  - Malaise [Unknown]
  - Concussion [Unknown]
  - Chest pain [Unknown]
  - Prescribed overdose [Unknown]
  - Mental impairment [Unknown]
  - Bronchitis [Unknown]
  - Headache [Unknown]
  - Oesophageal disorder [Unknown]
  - Oesophageal rupture [Unknown]
  - Head injury [Unknown]
  - Dyspnoea [Unknown]
  - Post procedural complication [Unknown]

NARRATIVE: CASE EVENT DATE: 20150103
